FAERS Safety Report 8926958 (Version 2)
Quarter: 2013Q1

REPORT INFORMATION
  Report Type: Report from Study
  Country: JP (occurrence: JP)
  Receive Date: 20121127
  Receipt Date: 20130220
  Transmission Date: 20140127
  Serious: Yes (Other)
  Sender: FDA-Public Use
  Company Number: JP-009507513-1211JPN009567

PATIENT
  Age: 58 Year
  Sex: Female
  Weight: 52 kg

DRUGS (19)
  1. PEGINTRON [Suspect]
     Indication: CHRONIC HEPATITIS C
     Dosage: 1.1 MICROGRAM PER KILOGRAM, QW
     Route: 058
     Dates: start: 20120726, end: 20120726
  2. PEGINTRON [Suspect]
     Dosage: 1.3 MICROGRAM PER KILOGRAM, QW
     Route: 058
     Dates: start: 20120802, end: 20120802
  3. PEGINTRON [Suspect]
     Dosage: 1.5 MICROGRAM PER KILOGRAM, QW
     Route: 058
     Dates: start: 20120809, end: 20120920
  4. PEGINTRON [Suspect]
     Dosage: 0.8 MICROGRAM PER KILOGRAM, QW
     Route: 058
     Dates: start: 20121004, end: 20121004
  5. PEGINTRON [Suspect]
     Dosage: 0.6 MICROGRAM PER KILOGRAM, QW
     Route: 058
     Dates: start: 20121018, end: 20121101
  6. PEGINTRON [Suspect]
     Dosage: 0.8 MICROGRAM PER KILOGRAM, QW
     Route: 058
     Dates: start: 20121108, end: 20121108
  7. PEGINTRON [Suspect]
     Dosage: 1 MICROGRAM PER KILOGRAM, QW
     Route: 058
     Dates: start: 20121115, end: 20121213
  8. PEGINTRON [Suspect]
     Dosage: 1.2 MICROGRAM PER KILOGRAM, QW
     Route: 058
     Dates: start: 20121220
  9. REBETOL [Suspect]
     Indication: CHRONIC HEPATITIS C
     Dosage: 400 MG, QD
     Route: 048
     Dates: start: 20120726, end: 20120822
  10. REBETOL [Suspect]
     Dosage: 200 MG, QD
     Route: 048
     Dates: start: 20120823, end: 20120925
  11. REBETOL [Suspect]
     Dosage: 400 MG, QD
     Route: 048
     Dates: start: 20121004, end: 20121009
  12. REBETOL [Suspect]
     Dosage: 200 MG, QD
     Route: 048
     Dates: start: 20121025, end: 20121107
  13. REBETOL [Suspect]
     Dosage: 400 MG, QD
     Route: 048
     Dates: start: 20121108, end: 20121219
  14. REBETOL [Suspect]
     Dosage: 600 MG, QD
     Route: 048
     Dates: start: 20121220
  15. TELAVIC [Suspect]
     Indication: CHRONIC HEPATITIS C
     Dosage: 1500 MG, QD
     Route: 048
     Dates: start: 20120726, end: 20120808
  16. TELAVIC [Suspect]
     Dosage: 1000 MG QD
     Route: 048
     Dates: start: 20120809, end: 20120815
  17. TELAVIC [Suspect]
     Dosage: 750 MG, QD
     Route: 048
     Dates: start: 20120816, end: 20120822
  18. TELAVIC [Suspect]
     Dosage: 500 MG, QD
     Route: 048
     Dates: start: 20120906, end: 20120925
  19. REBAMIPIDE [Concomitant]
     Indication: PROPHYLAXIS
     Dosage: 300 MG, QD
     Route: 048
     Dates: start: 20120726

REACTIONS (1)
  - Erythema [Recovering/Resolving]
